FAERS Safety Report 13440142 (Version 1)
Quarter: 2017Q2

REPORT INFORMATION
  Report Type: Spontaneous
  Country: US (occurrence: US)
  Receive Date: 20170413
  Receipt Date: 20170413
  Transmission Date: 20170830
  Serious: Yes (Hospitalization)
  Sender: FDA-Public Use
  Company Number: US-CELGENEUS-USA-20170402523

PATIENT
  Sex: Male

DRUGS (1)
  1. POMALYST [Suspect]
     Active Substance: POMALIDOMIDE
     Indication: PLASMA CELL MYELOMA
     Dosage: 4 MILLIGRAM
     Route: 048
     Dates: start: 201701

REACTIONS (6)
  - Abdominal pain [Unknown]
  - Lymphadenopathy [Unknown]
  - Joint swelling [Unknown]
  - Atrial fibrillation [Unknown]
  - Neck pain [Unknown]
  - Nausea [Unknown]

NARRATIVE: CASE EVENT DATE: 2017
